FAERS Safety Report 9094505 (Version 3)
Quarter: 2013Q2

REPORT INFORMATION
  Report Type: Spontaneous
  Country: US (occurrence: US)
  Receive Date: 20130219
  Receipt Date: 20130419
  Transmission Date: 20140414
  Serious: Yes (Death, Hospitalization)
  Sender: FDA-Public Use
  Company Number: US-B.I. PHARMACEUTICALS,INC./RIDGEFIELD-2013-BI-04065BP

PATIENT
  Age: 88 Year
  Sex: Female
  Weight: 66.68 kg

DRUGS (12)
  1. PRADAXA [Suspect]
     Indication: ANTICOAGULANT THERAPY
     Dosage: 150 MG
     Dates: start: 20110223, end: 20110516
  2. PRADAXA [Suspect]
     Indication: ATRIAL FIBRILLATION
  3. GLYBURIDE [Concomitant]
  4. TRAMADOL [Concomitant]
  5. MAGNESIUM OXIDE [Concomitant]
     Dosage: 800 MG
  6. AMIODARONE [Concomitant]
     Dosage: 400 MG
  7. ASPIRIN [Concomitant]
     Dosage: 81 MG
  8. BUMEX [Concomitant]
     Dosage: 4 MG
     Route: 048
  9. COREG [Concomitant]
     Dosage: 6.25 MG
     Route: 048
  10. KLOR-CON [Concomitant]
     Dosage: 40 MEQ
  11. SYNTHROID [Concomitant]
     Dosage: 100 MCG
  12. PREMARIN [Concomitant]
     Dosage: 1.25 MG

REACTIONS (7)
  - Gastrointestinal haemorrhage [Fatal]
  - Anaemia [Fatal]
  - International normalised ratio increased [Unknown]
  - Nausea [Unknown]
  - Vomiting [Unknown]
  - Diarrhoea [Unknown]
  - Asthenia [Unknown]
